FAERS Safety Report 12689605 (Version 1)
Quarter: 2016Q3

REPORT INFORMATION
  Report Type: Spontaneous
  Country: None (occurrence: None)
  Receive Date: 20160825
  Receipt Date: 20160825
  Transmission Date: 20161109
  Serious: No
  Sender: FDA-Public Use
  Company Number: None

PATIENT
  Age: 61 Year
  Sex: Female

DRUGS (1)
  1. PACLITAXEL. [Suspect]
     Active Substance: PACLITAXEL

REACTIONS (3)
  - Unresponsive to stimuli [None]
  - Drug hypersensitivity [None]
  - Pulse absent [None]

NARRATIVE: CASE EVENT DATE: 20160622
